FAERS Safety Report 21808692 (Version 1)
Quarter: 2023Q1

REPORT INFORMATION
  Report Type: Spontaneous
  Country: IT (occurrence: IT)
  Receive Date: 20230103
  Receipt Date: 20230103
  Transmission Date: 20230418
  Serious: Yes (Other)
  Sender: FDA-Public Use
  Company Number: None

PATIENT
  Age: 70 Year
  Sex: Male
  Weight: 65 kg

DRUGS (2)
  1. IBUPROFEN [Interacting]
     Active Substance: IBUPROFEN
     Indication: Influenza
     Dosage: UNK
     Route: 048
     Dates: start: 20221201, end: 20221210
  2. ASPIRIN [Interacting]
     Active Substance: ASPIRIN
     Indication: Neck pain
     Dosage: UNK
     Route: 048
     Dates: start: 20221217

REACTIONS (2)
  - Vasculitis [Unknown]
  - Urticaria [Unknown]

NARRATIVE: CASE EVENT DATE: 20221217
